FAERS Safety Report 13580763 (Version 1)
Quarter: 2017Q2

REPORT INFORMATION
  Report Type: Spontaneous
  Country: US (occurrence: US)
  Receive Date: 20170525
  Receipt Date: 20170525
  Transmission Date: 20170830
  Serious: Yes (Other)
  Sender: FDA-Public Use
  Company Number: US-SUPERNUS PHARMACEUTICALS, INC.-2017SUP00121

PATIENT
  Age: 14 Year
  Sex: Male
  Weight: 68.93 kg

DRUGS (4)
  1. OXTELLAR XR [Suspect]
     Active Substance: OXCARBAZEPINE
     Indication: CEREBRAL PALSY
  2. OXTELLAR XR [Suspect]
     Active Substance: OXCARBAZEPINE
     Indication: EPILEPSY
     Dosage: 300 MG, 1X/DAY
     Route: 048
     Dates: start: 20130823
  3. OXTELLAR XR [Suspect]
     Active Substance: OXCARBAZEPINE
     Indication: EPILEPSY
     Dosage: 600 MG, 1X/DAY
     Route: 048
  4. OXTELLAR XR [Suspect]
     Active Substance: OXCARBAZEPINE
     Indication: CEREBRAL PALSY

REACTIONS (5)
  - Hypoglycaemia [Recovered/Resolved]
  - Seizure [Recovered/Resolved]
  - Pyrexia [Recovered/Resolved]
  - Off label use [Not Recovered/Not Resolved]
  - Headache [Unknown]

NARRATIVE: CASE EVENT DATE: 20170510
